FAERS Safety Report 9980433 (Version 3)
Quarter: 2015Q4

REPORT INFORMATION
  Report Type: Report from Study
  Country: IE (occurrence: IE)
  Receive Date: 20140307
  Receipt Date: 20151026
  Transmission Date: 20160305
  Serious: Yes (Death, Other)
  Sender: FDA-Public Use
  Company Number: IE-ROCHE-1355554

PATIENT

DRUGS (3)
  1. OXALIPLATIN. [Suspect]
     Active Substance: OXALIPLATIN
     Indication: GASTROINTESTINAL CARCINOMA
     Dosage: ON DAY 1, EVERY 22 DAYS
     Route: 065
  2. CAPECITABINE. [Suspect]
     Active Substance: CAPECITABINE
     Indication: GASTROINTESTINAL CARCINOMA
     Dosage: ON DAY 1 TO 21 EVERY 22 DAYS
     Route: 065
  3. EPIRUBICIN [Suspect]
     Active Substance: EPIRUBICIN
     Indication: GASTROINTESTINAL CARCINOMA
     Dosage: ON DAY 1, EVERY 22 DAYS
     Route: 065

REACTIONS (2)
  - Sepsis [Fatal]
  - Weight decreased [Unknown]
